FAERS Safety Report 6905342-3 (Version None)
Quarter: 2010Q3

REPORT INFORMATION
  Report Type: 
  Country: None (occurrence: None)
  Receive Date: 20100802
  Receipt Date: 20100715
  Transmission Date: 20110219
  Serious: Yes (Other)
  Sender: FDA-Public Use
  Company Number: 2010US-35878

PATIENT
  Age: 33 Year
  Sex: Female

DRUGS (1)
  1. WESTCORT [Suspect]
     Indication: PRODUCT USED FOR UNKNOWN INDICATION

REACTIONS (3)
  - BENIGN INTRACRANIAL HYPERTENSION [None]
  - VISION BLURRED [None]
  - VOMITING [None]
